FAERS Safety Report 10205962 (Version 1)
Quarter: 2014Q2

REPORT INFORMATION
  Report Type: Spontaneous
  Country: US (occurrence: None)
  Receive Date: 20140527
  Receipt Date: 20140527
  Transmission Date: 20141212
  Serious: Yes (Hospitalization)
  Sender: FDA-Public Use
  Company Number: None

PATIENT
  Age: 34 Year
  Sex: Male

DRUGS (10)
  1. RISPERDAL [Suspect]
     Indication: SCHIZOPHRENIA
     Route: 048
     Dates: start: 20120226, end: 20120227
  2. DIPHENHYDRAMINE [Concomitant]
  3. DOCUSATE [Concomitant]
  4. VALPROIC ACID [Concomitant]
  5. PAROXETINE [Concomitant]
  6. LEVOTHYROXINE [Concomitant]
  7. PROPRANOLOL [Concomitant]
  8. GABAPENTIN [Concomitant]
  9. HYDROCHLOROTHIAZIDE [Concomitant]
  10. ENALAPRIL [Concomitant]

REACTIONS (9)
  - Mental status changes [None]
  - Paranoia [None]
  - Schizophrenia [None]
  - Agitation [None]
  - Lethargy [None]
  - Dysarthria [None]
  - Hyperhidrosis [None]
  - Unresponsive to stimuli [None]
  - Muscle rigidity [None]
